FAERS Safety Report 9974377 (Version 1)
Quarter: 2014Q1

REPORT INFORMATION
  Report Type: Report from Study
  Country: US (occurrence: US)
  Receive Date: 20140306
  Receipt Date: 20140306
  Transmission Date: 20141002
  Serious: No
  Sender: FDA-Public Use
  Company Number: US-ABBVIE-13P-163-1158991-00

PATIENT
  Age: 42 Year
  Sex: Female

DRUGS (10)
  1. HUMIRA [Suspect]
     Indication: CROHN^S DISEASE
     Dates: start: 20131009, end: 20131009
  2. HUMIRA [Suspect]
  3. PENTASA [Concomitant]
     Indication: CROHN^S DISEASE
  4. DESONIDE [Concomitant]
     Indication: CROHN^S DISEASE
     Dosage: 2 TAB (TAPERING OFF) AS A STEROID
  5. FIBERCON [Concomitant]
     Indication: PRODUCT USED FOR UNKNOWN INDICATION
     Dosage: OVER THE COUNTER EACH MORNING
  6. METOPROLOL [Concomitant]
     Indication: HYPERTENSION
     Dosage: AT BEDTIME
  7. LEVOTHYROXINE [Concomitant]
     Indication: THYROID DISORDER
  8. ZOVIA [Concomitant]
     Indication: CONTRACEPTION
  9. PAXIL [Concomitant]
     Indication: DEPRESSION
  10. VITAMIN B12 [Concomitant]
     Indication: VITAMIN B12 DEFICIENCY

REACTIONS (1)
  - Dyspepsia [Not Recovered/Not Resolved]
